FAERS Safety Report 24752454 (Version 1)
Quarter: 2024Q4

REPORT INFORMATION
  Report Type: Spontaneous
  Country: US (occurrence: US)
  Receive Date: 20241219
  Receipt Date: 20241219
  Transmission Date: 20250115
  Serious: Yes (Death, Other)
  Sender: AMGEN
  Company Number: US-AMGEN-USASP2024244837

PATIENT

DRUGS (3)
  1. CARFILZOMIB [Suspect]
     Active Substance: CARFILZOMIB
     Indication: Plasma cell myeloma refractory
     Dosage: UNK (5 PTS WERE TREATED AT DOSE 20/27MG/MSQ./3 PATIENTS WERE TREATED AT DOSE 20/36 MG/MSQ GIVEN IV O
     Route: 040
  2. SELINEXOR [Suspect]
     Active Substance: SELINEXOR
     Indication: Plasma cell myeloma refractory
     Dosage: UNK (5 PTS IN LEVEL 1 AND 3 PT IN LEVEL 2A WERE TREATED AT DOSE (30 MG/MSQ PO ON DAYS 1, 3, 8, 10,15
     Route: 048
  3. DEXAMETHASONE [Suspect]
     Active Substance: DEXAMETHASONE
     Indication: Plasma cell myeloma refractory
     Dosage: UNK (5 PTS IN LEVEL 1 AND 3 PT IN LEVEL 2A WERE TREATED AT DOSE (20/10MG PO(CYCLES 1-4/CYCLES 5+) IN
     Route: 048

REACTIONS (11)
  - Plasma cell myeloma refractory [Fatal]
  - Thrombocytopenia [Unknown]
  - Neutropenia [Unknown]
  - Leukopenia [Unknown]
  - Lymphopenia [Unknown]
  - Anaemia [Unknown]
  - Fatigue [Unknown]
  - Upper respiratory tract infection [Unknown]
  - Therapy non-responder [Unknown]
  - Dyspnoea [Unknown]
  - Nausea [Unknown]
